FAERS Safety Report 4512351-0 (Version None)
Quarter: 2004Q4

REPORT INFORMATION
  Report Type: 
  Country: None (occurrence: None)
  Receive Date: 20041123
  Receipt Date: 20041110
  Transmission Date: 20050328
  Serious: Yes (Hospitalization)
  Sender: FDA-Public Use
  Company Number: 2004AP05740

PATIENT
  Age: 69 Year
  Sex: Male

DRUGS (1)
  1. NEXIUM [Suspect]
     Dosage: 40 MG DAILY, PO
     Route: 048
     Dates: start: 20031206, end: 20031209

REACTIONS (3)
  - DYSPNOEA [None]
  - FEELING HOT [None]
  - HYPOXIA [None]
